FAERS Safety Report 5223768-3 (Version None)
Quarter: 2007Q1

REPORT INFORMATION
  Report Type: 
  Country: None (occurrence: None)
  Receive Date: 20070125
  Receipt Date: 20070115
  Transmission Date: 20070707
  Serious: Yes (Hospitalization)
  Sender: FDA-Public Use
  Company Number: HQWYE728117JAN07

PATIENT
  Age: 56 Year
  Sex: Male

DRUGS (3)
  1. EFFEXOR [Suspect]
     Dosage: 500 MG (OVERDOSE AMOUNT)
     Dates: start: 20021101, end: 20021101
  2. ALCOHOL (ETHANOL) [Suspect]
     Dates: start: 20021101, end: 20021101
  3. CITALOPRAM HYDROBROMIDE [Suspect]
     Dosage: 340 MG (OVERDOSE AMOUNT)
     Dates: start: 20021101, end: 20021101

REACTIONS (5)
  - ALCOHOL POISONING [None]
  - BRADYCARDIA [None]
  - NEUROLOGICAL SYMPTOM [None]
  - OVERDOSE [None]
  - SOMNOLENCE [None]
